FAERS Safety Report 24294236 (Version 1)
Quarter: 2024Q3

REPORT INFORMATION
  Report Type: Spontaneous
  Country: US (occurrence: US)
  Receive Date: 20240906
  Receipt Date: 20240906
  Transmission Date: 20241017
  Serious: No
  Sender: DOMPE FARMACEUTICI
  Company Number: US-FARMAPROD-202406-2161

PATIENT
  Age: 49 Year
  Sex: Female
  Weight: 97.75 kg

DRUGS (20)
  1. OXERVATE [Suspect]
     Active Substance: CENEGERMIN-BKBJ
     Indication: Neurotrophic keratopathy
     Route: 047
     Dates: start: 20240522
  2. OXERVATE [Suspect]
     Active Substance: CENEGERMIN-BKBJ
     Indication: Hypoaesthesia eye
  3. TRETINOIN [Concomitant]
     Active Substance: TRETINOIN
  4. AMMONIUM LACTATE [Concomitant]
     Active Substance: AMMONIUM LACTATE
  5. TRELEGY ELLIPTA [Concomitant]
     Active Substance: FLUTICASONE FUROATE\UMECLIDINIUM BROMIDE\VILANTEROL TRIFENATATE
     Dosage: 200-62.5 BLISTER WITH DEVICE.
  6. JINTELI [Concomitant]
     Active Substance: ETHINYL ESTRADIOL\NORETHINDRONE ACETATE
     Dosage: 1MG-5MCG
  7. RESTASIS [Concomitant]
     Active Substance: CYCLOSPORINE
  8. TYRVAYA [Concomitant]
     Active Substance: VARENICLINE TARTRATE
  9. IBUPROFEN [Concomitant]
     Active Substance: IBUPROFEN
  10. CLONIDINE HYDROCHLORIDE [Concomitant]
     Active Substance: CLONIDINE HYDROCHLORIDE
  11. TRIAMCINOLONE ACETONIDE [Concomitant]
     Active Substance: TRIAMCINOLONE ACETONIDE
  12. ATORVASTATIN CALCIUM [Concomitant]
     Active Substance: ATORVASTATIN CALCIUM
  13. METFORMIN HYDROCHLORIDE [Concomitant]
     Active Substance: METFORMIN HYDROCHLORIDE
     Dosage: 24 HOURS
  14. CLONIDINE HYDROCHLORIDE [Concomitant]
     Active Substance: CLONIDINE HYDROCHLORIDE
  15. MIEBO [Concomitant]
     Active Substance: PERFLUOROHEXYLOCTANE
  16. LOTEPREDNOL ETABONATE [Concomitant]
     Active Substance: LOTEPREDNOL ETABONATE
  17. CYCLOSPORINE [Concomitant]
     Active Substance: CYCLOSPORINE
  18. FLUOCINONIDE [Concomitant]
     Active Substance: FLUOCINONIDE
  19. BUPRENORPHINE\NALOXONE [Concomitant]
     Active Substance: BUPRENORPHINE\NALOXONE
  20. VARENICLINE TARTRATE [Concomitant]
     Active Substance: VARENICLINE TARTRATE

REACTIONS (2)
  - Eye pain [Recovering/Resolving]
  - Photophobia [Recovering/Resolving]

NARRATIVE: CASE EVENT DATE: 20240522
